FAERS Safety Report 5190423-8 (Version None)
Quarter: 2006Q4

REPORT INFORMATION
  Report Type: 
  Country: None (occurrence: None)
  Receive Date: 20061222
  Receipt Date: 20060927
  Transmission Date: 20070319
  Serious: Yes (Other)
  Sender: FDA-Public Use
  Company Number: PHMT2006CA01876

PATIENT
  Age: 36 Year
  Sex: Male

DRUGS (4)
  1. CARBOLITH [Concomitant]
     Dosage: 750 MG DAILY
     Route: 048
  2. XANAX [Concomitant]
     Dosage: 0.5 MG, QID
     Route: 048
  3. CLOZARIL [Suspect]
     Indication: SCHIZOAFFECTIVE DISORDER
     Dosage: 350 MG DAILY
     Route: 048
     Dates: start: 20010321
  4. CLOZARIL [Suspect]
     Dosage: DOSE REDUCTION
     Route: 048
     Dates: end: 20060905

REACTIONS (8)
  - ACCIDENTAL OVERDOSE [None]
  - BLOOD CREATINE PHOSPHOKINASE INCREASED [None]
  - CHEST PAIN [None]
  - DISTURBANCE IN ATTENTION [None]
  - DRUG LEVEL INCREASED [None]
  - DRUG TOXICITY [None]
  - SOMNOLENCE [None]
  - TREMOR [None]
